FAERS Safety Report 25151425 (Version 1)
Quarter: 2025Q2

REPORT INFORMATION
  Report Type: Report from Study
  Country: US (occurrence: US)
  Receive Date: 20250402
  Receipt Date: 20250402
  Transmission Date: 20250717
  Serious: Yes (Other)
  Sender: TAKEDA
  Company Number: US-TAKEDA-2018MPI006153

PATIENT
  Sex: Female

DRUGS (2)
  1. IXAZOMIB [Suspect]
     Active Substance: IXAZOMIB
     Indication: Plasma cell myeloma
  2. REVLIMID [Suspect]
     Active Substance: LENALIDOMIDE
     Indication: Plasma cell myeloma

REACTIONS (7)
  - Fungal foot infection [Unknown]
  - Nausea [Unknown]
  - Anxiety [Unknown]
  - Hypoaesthesia [Unknown]
  - Product packaging difficult to open [Unknown]
  - Fatigue [Not Recovered/Not Resolved]
  - Back pain [Unknown]
